FAERS Safety Report 11190674 (Version 3)
Quarter: 2016Q1

REPORT INFORMATION
  Report Type: Spontaneous
  Country: IL (occurrence: IL)
  Receive Date: 20150615
  Receipt Date: 20160315
  Transmission Date: 20160525
  Serious: Yes (Hospitalization, Other)
  Sender: FDA-Public Use
  Company Number: IL-SHIRE-IL201505115

PATIENT
  Age: 50 Year
  Sex: Male

DRUGS (1)
  1. VPRIV [Suspect]
     Active Substance: VELAGLUCERASE ALFA
     Indication: GAUCHER^S DISEASE
     Dosage: 1600 IU (4 VIALS), 1X/2WKS
     Route: 041
     Dates: start: 201107

REACTIONS (4)
  - Spleen disorder [Recovered/Resolved]
  - Helicobacter infection [Unknown]
  - Thrombocytopenia [Unknown]
  - Peptic ulcer haemorrhage [Unknown]

NARRATIVE: CASE EVENT DATE: 20150602
